FAERS Safety Report 14381719 (Version 1)
Quarter: 2018Q1

REPORT INFORMATION
  Report Type: Other
  Country: US (occurrence: US)
  Receive Date: 20180112
  Receipt Date: 20180112
  Transmission Date: 20180509
  Serious: Yes (Death)
  Sender: FDA-Public Use
  Company Number: US-GENUS_LIFESCIENCES-USA-POI0580201800063

PATIENT
  Age: 37 Year
  Sex: Female

DRUGS (10)
  1. CLONAZEPAM. [Suspect]
     Active Substance: CLONAZEPAM
     Dates: end: 2016
  2. PROPRANOLOL [Suspect]
     Active Substance: PROPRANOLOL HYDROCHLORIDE
     Dates: end: 2016
  3. VALACYCLOVIR [Suspect]
     Active Substance: VALACYCLOVIR HYDROCHLORIDE
     Dates: end: 2016
  4. LEVOLET (LEVOTHYROXINE) [Suspect]
     Active Substance: LEVOTHYROXINE
     Dates: end: 2016
  5. GABAPENTIN. [Suspect]
     Active Substance: GABAPENTIN
     Dates: end: 2016
  6. MAGNESIUM OXIDE. [Suspect]
     Active Substance: MAGNESIUM OXIDE
     Dates: end: 2016
  7. DULOXETINE. [Suspect]
     Active Substance: DULOXETINE
     Dates: end: 2016
  8. VITAMIN D [Suspect]
     Active Substance: CHOLECALCIFEROL
     Dates: end: 2016
  9. ESZOPICLONE. [Suspect]
     Active Substance: ESZOPICLONE
     Dates: end: 2016
  10. ESOMEPRAZOLE [Suspect]
     Active Substance: ESOMEPRAZOLE
     Dates: end: 2016

REACTIONS (3)
  - Completed suicide [Fatal]
  - Respiratory arrest [Fatal]
  - Cardiac arrest [Fatal]

NARRATIVE: CASE EVENT DATE: 2016
